FAERS Safety Report 19833222 (Version 1)
Quarter: 2021Q3

REPORT INFORMATION
  Report Type: Other
  Country: US (occurrence: US)
  Receive Date: 20210915
  Receipt Date: 20210915
  Transmission Date: 20211014
  Serious: Yes (Other)
  Sender: FDA-Public Use
  Company Number: US-ROCHE-2908248

PATIENT
  Sex: Female

DRUGS (15)
  1. FAMOTIDINE. [Concomitant]
     Active Substance: FAMOTIDINE
  2. XOLAIR [Suspect]
     Active Substance: OMALIZUMAB
  3. FLUTICASONE PROPIONATE. [Concomitant]
     Active Substance: FLUTICASONE PROPIONATE
  4. TRELEGY ELLIPTA [Concomitant]
     Active Substance: FLUTICASONE FUROATE\UMECLIDINIUM BROMIDE\VILANTEROL TRIFENATATE
     Dosage: 1 PUFF
  5. MONTELUKAST SODIUM. [Concomitant]
     Active Substance: MONTELUKAST SODIUM
     Route: 048
  6. DEXAMETHASONE. [Concomitant]
     Active Substance: DEXAMETHASONE
     Route: 048
  7. XOLAIR [Suspect]
     Active Substance: OMALIZUMAB
  8. ALBUTEROL SULFATE. [Concomitant]
     Active Substance: ALBUTEROL SULFATE
     Dosage: 1 UNIT DOSE Q 4?6
  9. EPINEPHRINE. [Concomitant]
     Active Substance: EPINEPHRINE
     Route: 030
  10. PEPCID [Concomitant]
     Active Substance: FAMOTIDINE
     Route: 048
  11. FLOVENT HFA [Concomitant]
     Active Substance: FLUTICASONE PROPIONATE
  12. PREDNISONE. [Concomitant]
     Active Substance: PREDNISONE
     Route: 048
  13. XOLAIR [Suspect]
     Active Substance: OMALIZUMAB
     Indication: IDIOPATHIC URTICARIA
     Dosage: DATE OF TREATMENT: 18/AUG/2019
     Route: 058
  14. FEXOFENADINE HCL [Concomitant]
     Active Substance: FEXOFENADINE HYDROCHLORIDE
     Route: 048
  15. PROAIR HFA [Concomitant]
     Active Substance: ALBUTEROL SULFATE

REACTIONS (4)
  - Anaphylactic reaction [Unknown]
  - Urticaria [Unknown]
  - Swelling [Unknown]
  - Condition aggravated [Unknown]
